FAERS Safety Report 8933780 (Version 1)
Quarter: 2012Q4

REPORT INFORMATION
  Report Type: 
  Country: JP (occurrence: JP)
  Receive Date: 20121129
  Receipt Date: 20121129
  Transmission Date: 20130627
  Serious: Yes (Other)
  Sender: FDA-Public Use
  Company Number: JP-US-EMD SERONO, INC.-7174870

PATIENT
  Age: 66 Year
  Sex: Female

DRUGS (8)
  1. MITOXANTRONE [Suspect]
     Indication: B-CELL LYMPHOMA
     Dates: start: 1990
  2. EPIRUBICIN [Suspect]
     Indication: B-CELL LYMPHOMA
     Dates: start: 1990
  3. VINCRISTINE [Suspect]
     Indication: B-CELL LYMPHOMA
     Dates: start: 1990
  4. CYCLOPHOSPHAMIDE [Suspect]
     Indication: B-CELL LYMPHOMA
     Dates: start: 1990
  5. PREDNISOLONE [Suspect]
     Indication: B-CELL LYMPHOMA
     Dates: start: 1990
  6. ETOPOSIDE [Suspect]
     Indication: B-CELL LYMPHOMA
     Dates: start: 1990
  7. CISPLATIN [Suspect]
     Indication: B-CELL LYMPHOMA
     Dates: start: 1990
  8. METHOTREXATE [Suspect]
     Indication: B-CELL LYMPHOMA
     Dates: start: 1990

REACTIONS (1)
  - Sweat gland tumour [Unknown]
